FAERS Safety Report 13053236 (Version 1)
Quarter: 2016Q4

REPORT INFORMATION
  Report Type: Spontaneous
  Country: JP (occurrence: JP)
  Receive Date: 20161222
  Receipt Date: 20161222
  Transmission Date: 20170207
  Serious: Yes (Other)
  Sender: FDA-Public Use
  Company Number: JP-ORION CORPORATION ORION PHARMA-ENT 2016-0242

PATIENT
  Age: 54 Year
  Sex: Female

DRUGS (10)
  1. CARBIDOPA AND LEVODOPA [Concomitant]
     Active Substance: CARBIDOPA\LEVODOPA
     Dosage: AT THE TIME OF AWAKENING: 1 TAB, AFTER MORNING MEAL: 1.5 TAB, AT 1000 HOURS: 1 TAB, BEFORE LUNCH: 1.
     Route: 065
  2. CARBIDOPA AND LEVODOPA [Concomitant]
     Active Substance: CARBIDOPA\LEVODOPA
     Dosage: AT 0600 HOURS: 1 TAB, 1000 HOURS: 1 TAB, 1400 HOURS: 1 TAB, 1800 HOURS: 1 TAB, 2200 HOURS: 1 TAB
     Route: 065
  3. PRAMIPEXOLE. [Concomitant]
     Active Substance: PRAMIPEXOLE
     Route: 065
  4. ENTACAPONE (TRADE NAME UNKNOWN) [Suspect]
     Active Substance: ENTACAPONE
     Indication: PARKINSON^S DISEASE
     Route: 048
  5. SELEGILINE [Concomitant]
     Active Substance: SELEGILINE
     Route: 065
  6. ROPINIROLE. [Concomitant]
     Active Substance: ROPINIROLE
     Route: 065
  7. AMANTADINE [Suspect]
     Active Substance: AMANTADINE
     Indication: PARKINSON^S DISEASE
     Route: 048
  8. ENTACAPONE (TRADE NAME UNKNOWN) [Suspect]
     Active Substance: ENTACAPONE
     Route: 048
  9. CLONAZEPAM. [Concomitant]
     Active Substance: CLONAZEPAM
     Indication: PAIN
     Route: 065
  10. ROPINIROLE. [Concomitant]
     Active Substance: ROPINIROLE
     Route: 065

REACTIONS (4)
  - Dyskinesia [Unknown]
  - Malaise [Unknown]
  - Parkinson^s disease [Unknown]
  - Back pain [Unknown]
